FAERS Safety Report 4737890-9 (Version None)
Quarter: 2005Q3

REPORT INFORMATION
  Report Type: 
  Country: None (occurrence: None)
  Receive Date: 20050809
  Receipt Date: 20050728
  Transmission Date: 20060218
  Serious: Yes (Other)
  Sender: FDA-Public Use
  Company Number: US-JNJFOC-20050800318

PATIENT
  Sex: Female
  Weight: 61.24 kg

DRUGS (7)
  1. REMICADE [Suspect]
     Dosage: FEB-05 OR MAR-05
     Route: 042
  2. REMICADE [Suspect]
     Indication: CROHN'S DISEASE
     Route: 042
  3. PREDNISONE [Concomitant]
  4. LOMOTIL [Concomitant]
  5. LOMOTIL [Concomitant]
  6. PAXIL [Concomitant]
     Indication: DEPRESSION
  7. NEXIUM [Concomitant]

REACTIONS (6)
  - CARDIAC FAILURE CONGESTIVE [None]
  - DRUG INEFFECTIVE [None]
  - MALAISE [None]
  - MULTIPLE MYELOMA [None]
  - MYOCARDIAL INFARCTION [None]
  - THROMBOSIS [None]
